FAERS Safety Report 4801097-7 (Version None)
Quarter: 2005Q4

REPORT INFORMATION
  Report Type: 
  Country: None (occurrence: None)
  Receive Date: 20051017
  Receipt Date: 20051012
  Transmission Date: 20060501
  Serious: Yes (Life-Threatening, Hospitalization, Disabling)
  Sender: FDA-Public Use
  Company Number: PHEH2005US11407

PATIENT
  Age: 78 Year
  Sex: Male

DRUGS (17)
  1. STARLIX [Suspect]
     Indication: HYPERGLYCAEMIA
     Dosage: 60 MG, QD
     Route: 048
     Dates: start: 20050908, end: 20051002
  2. PREDNISONE [Concomitant]
  3. ASPIRIN [Concomitant]
  4. PRAVACHOL [Concomitant]
  5. PROTONIX [Concomitant]
  6. VALCYTE [Concomitant]
  7. LIPITOR [Concomitant]
  8. LASIX [Concomitant]
  9. ENALAPRIL [Concomitant]
  10. POTASSIUM CHLORIDE [Concomitant]
  11. FORTEO [Concomitant]
  12. ANTIASTHMATICS,INHALANTS [Concomitant]
  13. SEPTRA [Suspect]
  14. LANTUS [Concomitant]
     Dosage: 4 UNITS, UNK
     Route: 058
     Dates: end: 20050915
  15. LEVAQUIN [Concomitant]
     Dosage: 500 MG, UNK
     Dates: start: 20050908
  16. PROGRAF [Concomitant]
  17. CELLCEPT [Concomitant]

REACTIONS (8)
  - BIOPSY HEART ABNORMAL [None]
  - CARDIAC FAILURE CONGESTIVE [None]
  - CONDITION AGGRAVATED [None]
  - COUGH [None]
  - EOSINOPHILIC MYOCARDITIS [None]
  - MALAISE [None]
  - PYREXIA [None]
  - TRANSPLANT REJECTION [None]
